FAERS Safety Report 9630172 (Version 2)
Quarter: 2013Q4

REPORT INFORMATION
  Report Type: Spontaneous
  Country: CN (occurrence: CN)
  Receive Date: 20131017
  Receipt Date: 20131017
  Transmission Date: 20140711
  Serious: Yes (Other)
  Sender: FDA-Public Use
  Company Number: CN-ABBVIE-13P-035-1033489-00

PATIENT
  Age: 8 Year
  Sex: Female

DRUGS (2)
  1. DEPAKINE CHRONO [Suspect]
     Indication: EPILEPSY
     Route: 048
     Dates: start: 201206, end: 20121223
  2. DEPAKINE CHRONO [Suspect]
     Route: 048
     Dates: start: 20121224

REACTIONS (4)
  - Abnormal behaviour [Unknown]
  - Petit mal epilepsy [Recovered/Resolved]
  - Eye movement disorder [Unknown]
  - Enuresis [Not Recovered/Not Resolved]
